FAERS Safety Report 7574892-1 (Version None)
Quarter: 2011Q2

REPORT INFORMATION
  Report Type: 
  Country: None (occurrence: None)
  Receive Date: 20110627
  Receipt Date: 20110601
  Transmission Date: 20111010
  Serious: Yes (Hospitalization)
  Sender: FDA-Public Use
  Company Number: US-BAYER-2011-021624

PATIENT
  Age: 25 Year
  Sex: Female
  Weight: 68.027 kg

DRUGS (6)
  1. XANAX [Concomitant]
     Dosage: UNK
     Route: 048
  2. YASMIN [Suspect]
     Indication: CONTRACEPTION
     Dosage: UNK
     Route: 048
     Dates: start: 20040624, end: 20060619
  3. LANTUS [Concomitant]
     Indication: DIABETES MELLITUS
     Dosage: UNK UNK, HS
     Route: 058
     Dates: start: 20060101
  4. HUMALOG [Concomitant]
     Indication: DIABETES MELLITUS
     Dosage: UNK UNK, TID
     Route: 058
     Dates: start: 20000101
  5. PRILOSEC [Concomitant]
     Dosage: 20 MG, UNK
     Route: 048
  6. REGLAN [Concomitant]
     Dosage: 10 MG, QID
     Route: 048

REACTIONS (4)
  - HEPATOMEGALY [None]
  - CHOLECYSTITIS CHRONIC [None]
  - GALLBLADDER DISORDER [None]
  - BILIARY DYSKINESIA [None]
